FAERS Safety Report 18525499 (Version 1)
Quarter: 2020Q4

REPORT INFORMATION
  Report Type: Report from Study
  Country: JP (occurrence: JP)
  Receive Date: 20201120
  Receipt Date: 20201120
  Transmission Date: 20210114
  Serious: Yes (Hospitalization)
  Sender: FDA-Public Use
  Company Number: JP-ROCHE-2715117

PATIENT
  Age: 43 Year
  Sex: Male
  Weight: 56 kg

DRUGS (9)
  1. FYCOMPA [Concomitant]
     Active Substance: PERAMPANEL
     Dosage: DOSAGE IS UNCERTAIN
     Route: 065
     Dates: start: 20191129
  2. BACTRAMIN [Concomitant]
     Active Substance: SULFAMETHOXAZOLE\TRIMETHOPRIM
     Dosage: DOSAGE IS UNCERTAIN
     Route: 065
     Dates: start: 20200619
  3. BEVACIZUMAB. [Suspect]
     Active Substance: BEVACIZUMAB
     Indication: GLIOBLASTOMA
     Dosage: UNCERTAINTY AND SIX DOSE INTERVAL COURSES
     Route: 041
     Dates: start: 20200717, end: 20201002
  4. RINDERON [BETAMETHASONE] [Suspect]
     Active Substance: BETAMETHASONE
     Indication: BRAIN OEDEMA
     Route: 048
     Dates: start: 20200313
  5. ALLOPURINOL. [Concomitant]
     Active Substance: ALLOPURINOL
     Dosage: DOSAGE IS UNCERTAIN.
     Route: 065
     Dates: start: 20190125
  6. TEMOZOLOMIDE. [Suspect]
     Active Substance: TEMOZOLOMIDE
     Indication: GLIOBLASTOMA
     Dosage: UNCERTAIN DOSAGE AND FOUR COURSES
     Route: 065
  7. REBAMIPIDE [Concomitant]
     Active Substance: REBAMIPIDE
     Dosage: DOSAGE IS UNCERTAIN.
     Route: 065
     Dates: start: 20200313
  8. E KEPPRA [Suspect]
     Active Substance: LEVETIRACETAM
     Indication: EPILEPSY
     Dosage: MOST RECENT DOSE WAS RECEIVED ON 21/OCT/2020
     Route: 048
     Dates: start: 20190125
  9. ROSUVASTATIN. [Concomitant]
     Active Substance: ROSUVASTATIN
     Dosage: DOSAGE IS UNCERTAIN.
     Route: 065
     Dates: start: 20190125

REACTIONS (1)
  - Pancreatitis acute [Not Recovered/Not Resolved]

NARRATIVE: CASE EVENT DATE: 20201021
